FAERS Safety Report 8471545-2 (Version None)
Quarter: 2012Q2

REPORT INFORMATION
  Report Type: 
  Country: None (occurrence: None)
  Receive Date: 20120627
  Receipt Date: 20120614
  Transmission Date: 20120825
  Serious: No
  Sender: FDA-Public Use
  Company Number: US-ASTRAZENECA-2012SE40018

PATIENT
  Age: 74 Year
  Sex: Female
  Weight: 56.7 kg

DRUGS (9)
  1. ASPIRIN [Concomitant]
     Indication: ATRIAL FIBRILLATION
  2. ASPIRIN [Concomitant]
     Indication: TRANSIENT ISCHAEMIC ATTACK
  3. PRAVASTATIN [Concomitant]
  4. COQ10 [Concomitant]
     Indication: HYPERLIPIDAEMIA
  5. FOSAMAX [Concomitant]
     Indication: OSTEOPOROSIS
  6. CRESTOR [Concomitant]
     Indication: HYPERLIPIDAEMIA
  7. TOPROL-XL [Suspect]
     Indication: ATRIAL FIBRILLATION
     Route: 048
     Dates: start: 20120401
  8. XARELTO [Suspect]
     Indication: TRANSIENT ISCHAEMIC ATTACK
     Route: 048
     Dates: start: 20120401
  9. XARELTO [Suspect]
     Indication: ATRIAL FIBRILLATION
     Route: 048
     Dates: start: 20120401

REACTIONS (2)
  - OFF LABEL USE [None]
  - HEADACHE [None]
